FAERS Safety Report 4607984-7 (Version None)
Quarter: 2005Q2

REPORT INFORMATION
  Report Type: 
  Country: None (occurrence: None)
  Receive Date: 20050303
  Receipt Date: 20041105
  Transmission Date: 20051028
  Serious: No
  Sender: FDA-Public Use
  Company Number: 210245

PATIENT
  Age: 44 Year
  Sex: Female
  Weight: 59 kg

DRUGS (5)
  1. XOLAIR [Suspect]
     Indication: ASTHMA
     Dosage: 150 MG, Q4W, SUBCUTANEOUS
     Route: 058
     Dates: start: 20030909
  2. PULMICORT (BUSESONIDE) [Concomitant]
  3. DECONSAL NOS (COLD AND SINUS REMEDIES) [Concomitant]
  4. SINGULAIR(MONTRELUKAST SODIUM) [Concomitant]
  5. HUMIBID (GUAIFENESIN) [Concomitant]

REACTIONS (1)
  - PAIN IN EXTREMITY [None]
